FAERS Safety Report 20953683 (Version 3)
Quarter: 2022Q2

REPORT INFORMATION
  Report Type: Report from Study
  Country: DE (occurrence: DE)
  Receive Date: 20220613
  Receipt Date: 20220624
  Transmission Date: 20220721
  Serious: No
  Sender: FDA-Public Use
  Company Number: DE-ABBVIE-22K-062-4429219-00

PATIENT
  Age: 74 Year
  Sex: Female
  Weight: 70 kg

DRUGS (8)
  1. RINVOQ [Suspect]
     Active Substance: UPADACITINIB
     Indication: Psoriatic arthropathy
     Route: 048
     Dates: start: 20211125
  2. COMBIGAN [Suspect]
     Active Substance: BRIMONIDINE TARTRATE\TIMOLOL MALEATE
     Indication: Product used for unknown indication
     Dosage: LOCAL EYES
     Route: 047
  3. ACETAZOLAMIDE [Suspect]
     Active Substance: ACETAZOLAMIDE
     Indication: Product used for unknown indication
     Route: 048
  4. NEVANAC [Suspect]
     Active Substance: NEPAFENAC
     Indication: Product used for unknown indication
     Dosage: LOCAL EYES
     Route: 047
  5. OZURDEX [Concomitant]
     Active Substance: DEXAMETHASONE
     Indication: Glaucoma
     Route: 031
  6. OZURDEX [Concomitant]
     Active Substance: DEXAMETHASONE
     Indication: Macular oedema
  7. OZURDEX [Concomitant]
     Active Substance: DEXAMETHASONE
     Indication: Chorioretinitis
  8. PREDNISOLONE [Concomitant]
     Active Substance: PREDNISOLONE
     Indication: Product used for unknown indication
     Route: 048

REACTIONS (1)
  - Coronavirus infection [Recovered/Resolved]

NARRATIVE: CASE EVENT DATE: 20220123
